FAERS Safety Report 12365652 (Version 4)
Quarter: 2016Q3

REPORT INFORMATION
  Report Type: Spontaneous
  Country: JP (occurrence: JP)
  Receive Date: 20160513
  Receipt Date: 20160915
  Transmission Date: 20161109
  Serious: Yes (Hospitalization, Other)
  Sender: FDA-Public Use
  Company Number: JP-GLAXOSMITHKLINE-JP2016JPN065246

PATIENT
  Age: 37 Year
  Sex: Female

DRUGS (9)
  1. LUNESTA [Concomitant]
     Active Substance: ESZOPICLONE
     Dosage: 45 MG, SINGLE
     Dates: start: 20160509
  2. SILECE [Concomitant]
     Active Substance: FLUNITRAZEPAM
     Dosage: 40 MG, SINGLE
     Dates: start: 20160509
  3. LAMICTAL [Suspect]
     Active Substance: LAMOTRIGINE
     Indication: BIPOLAR DISORDER
     Dosage: 25 MG, QOD
     Route: 048
     Dates: start: 20120228
  4. LAMICTAL [Suspect]
     Active Substance: LAMOTRIGINE
     Dosage: 100 MG, BID
     Route: 048
     Dates: start: 20120904, end: 20160509
  5. SEROQUEL [Concomitant]
     Active Substance: QUETIAPINE FUMARATE
     Dosage: 2250 MG, SINGLE
     Dates: start: 20160509
  6. ZYPREXA [Concomitant]
     Active Substance: OLANZAPINE
     Dosage: 112.5 MG, SINGLE
     Dates: start: 20160509
  7. LEXAPRO [Concomitant]
     Active Substance: ESCITALOPRAM OXALATE
     Dosage: 300 MG, SINGLE
     Dates: start: 20160509
  8. LAMICTAL [Suspect]
     Active Substance: LAMOTRIGINE
     Dosage: 25 MG, QD
     Route: 048
     Dates: start: 20160607
  9. LAMICTAL [Suspect]
     Active Substance: LAMOTRIGINE
     Dosage: 3000 MG, SINGLE
     Route: 048
     Dates: start: 20160509, end: 20160509

REACTIONS (3)
  - Overdose [Unknown]
  - Depressed level of consciousness [Recovered/Resolved]
  - Coma [Recovered/Resolved]

NARRATIVE: CASE EVENT DATE: 20160509
